FAERS Safety Report 20584108 (Version 1)
Quarter: 2022Q1

REPORT INFORMATION
  Report Type: Report from Study
  Country: FR (occurrence: FR)
  Receive Date: 20220311
  Receipt Date: 20220311
  Transmission Date: 20220424
  Serious: Yes (Death, Hospitalization)
  Sender: FDA-Public Use
  Company Number: FR-ELI_LILLY_AND_COMPANY-FR202203003333

PATIENT
  Age: 81 Year
  Sex: Male
  Weight: 70 kg

DRUGS (2)
  1. ETESEVIMAB [Suspect]
     Active Substance: ETESEVIMAB
     Indication: COVID-19
     Dosage: 700 MG, SINGLE
     Route: 065
     Dates: start: 20210331, end: 20210331
  2. BAMLANIVIMAB [Suspect]
     Active Substance: BAMLANIVIMAB
     Indication: COVID-19
     Dosage: 700 MG, SINGLE
     Route: 065
     Dates: start: 20210331, end: 20210331

REACTIONS (2)
  - Lung disorder [Fatal]
  - Off label use [Unknown]

NARRATIVE: CASE EVENT DATE: 20210411
